FAERS Safety Report 14635585 (Version 2)
Quarter: 2018Q2

REPORT INFORMATION
  Report Type: Spontaneous
  Country: US (occurrence: US)
  Receive Date: 20180314
  Receipt Date: 20180430
  Transmission Date: 20180711
  Serious: Yes (Other)
  Sender: FDA-Public Use
  Company Number: US-LUNDBECK-DKLU2045502

PATIENT
  Age: 72 Year
  Sex: Male

DRUGS (15)
  1. DONEPEZIL. [Concomitant]
     Active Substance: DONEPEZIL
     Indication: PRODUCT USED FOR UNKNOWN INDICATION
     Route: 065
  2. GALANTAMINE. [Concomitant]
     Active Substance: GALANTAMINE
     Indication: PRODUCT USED FOR UNKNOWN INDICATION
     Route: 065
     Dates: start: 20180202
  3. NORTHERA [Suspect]
     Active Substance: DROXIDOPA
     Route: 065
     Dates: start: 20180310
  4. RYTARY [Concomitant]
     Active Substance: CARBIDOPA\LEVODOPA
     Indication: PRODUCT USED FOR UNKNOWN INDICATION
     Route: 065
  5. PAROXETINE. [Concomitant]
     Active Substance: PAROXETINE
     Indication: PRODUCT USED FOR UNKNOWN INDICATION
     Route: 065
  6. MIDODRINE [Concomitant]
     Active Substance: MIDODRINE
     Route: 065
  7. PRESERVISION [Concomitant]
     Active Substance: MINERALS\VITAMINS
     Indication: PRODUCT USED FOR UNKNOWN INDICATION
     Route: 065
  8. NORTHERA [Suspect]
     Active Substance: DROXIDOPA
     Indication: ORTHOSTATIC HYPOTENSION
     Route: 048
     Dates: start: 20180214
  9. VITAMIN E [Concomitant]
     Active Substance: .ALPHA.-TOCOPHEROL
     Indication: PRODUCT USED FOR UNKNOWN INDICATION
     Route: 065
  10. MIDODRINE [Concomitant]
     Active Substance: MIDODRINE
     Indication: PRODUCT USED FOR UNKNOWN INDICATION
     Route: 065
  11. NORTHERA [Suspect]
     Active Substance: DROXIDOPA
     Route: 048
     Dates: start: 20180307
  12. RYTARY [Concomitant]
     Active Substance: CARBIDOPA\LEVODOPA
     Route: 065
  13. DONEPEZIL. [Concomitant]
     Active Substance: DONEPEZIL
     Route: 065
  14. NORTHERA [Suspect]
     Active Substance: DROXIDOPA
     Route: 065
     Dates: start: 20180310
  15. PRESERVISION [Concomitant]
     Active Substance: MINERALS\VITAMINS
     Route: 065

REACTIONS (6)
  - Loss of consciousness [Unknown]
  - Asthenia [Unknown]
  - Fatigue [Unknown]
  - Hypotension [Unknown]
  - Blood pressure increased [Unknown]
  - Confusional state [Unknown]

NARRATIVE: CASE EVENT DATE: 20180214
